FAERS Safety Report 9792505 (Version 3)
Quarter: 2014Q3

REPORT INFORMATION
  Report Type: Spontaneous
  Country: JP (occurrence: JP)
  Receive Date: 20140102
  Receipt Date: 20140919
  Transmission Date: 20150326
  Serious: Yes (Hospitalization)
  Sender: FDA-Public Use
  Company Number: JP-SA-2013SA135658

PATIENT
  Age: 77 Year
  Sex: Female
  Weight: 65 kg

DRUGS (12)
  1. PREDNISOLONE. [Concomitant]
     Active Substance: PREDNISOLONE
     Indication: RETROPERITONEAL FIBROSIS
     Route: 048
  2. TOWAMIN [Concomitant]
     Active Substance: ATENOLOL
     Route: 048
     Dates: start: 20130801
  3. BLOPRESS [Concomitant]
     Active Substance: CANDESARTAN CILEXETIL
     Route: 048
     Dates: end: 20130729
  4. BLOPRESS [Concomitant]
     Active Substance: CANDESARTAN CILEXETIL
     Route: 048
     Dates: start: 20130801, end: 20130809
  5. TOWAMIN [Concomitant]
     Active Substance: ATENOLOL
     Route: 048
     Dates: end: 20130729
  6. TAKEPRON [Concomitant]
     Active Substance: LANSOPRAZOLE
     Route: 048
  7. DDAVP [Suspect]
     Active Substance: DESMOPRESSIN ACETATE
     Indication: DIABETES INSIPIDUS
     Dosage: 30 ?G/DAY HAD BEEN INTRANASALLY ADMINISTERED
     Route: 045
  8. BUFFERIN [Concomitant]
     Active Substance: ASPIRIN
     Route: 048
  9. CANDESARTAN CILEXETIL. [Suspect]
     Active Substance: CANDESARTAN CILEXETIL
     Indication: PRODUCT USED FOR UNKNOWN INDICATION
     Route: 048
     Dates: start: 20130801, end: 20130809
  10. VFEND [Concomitant]
     Active Substance: VORICONAZOLE
     Route: 048
  11. DDAVP [Suspect]
     Active Substance: DESMOPRESSIN ACETATE
     Indication: DIABETES INSIPIDUS
     Dosage: 30 ?G/DAY HAD BEEN INTRANASALLY ADMINISTERED
     Route: 045
     Dates: start: 2013, end: 20130808
  12. DDAVP [Suspect]
     Active Substance: DESMOPRESSIN ACETATE
     Indication: DIABETES INSIPIDUS
     Route: 045
     Dates: start: 20130812

REACTIONS (8)
  - Dehydration [Unknown]
  - Septic shock [Unknown]
  - Nausea [Unknown]
  - Hyponatraemia [Recovered/Resolved]
  - Pyelonephritis [Unknown]
  - Chills [Unknown]
  - Thirst [Unknown]
  - Urine analysis abnormal [Recovered/Resolved]

NARRATIVE: CASE EVENT DATE: 20130729
